FAERS Safety Report 8942136 (Version 1)
Quarter: 2012Q4

REPORT INFORMATION
  Report Type: 
  Country: FR (occurrence: FR)
  Receive Date: 20121130
  Receipt Date: 20121130
  Transmission Date: 20130627
  Serious: Yes (Hospitalization)
  Sender: FDA-Public Use
  Company Number: FR-VIIV HEALTHCARE LIMITED-B0848628A

PATIENT
  Age: 49 Year
  Sex: Female

DRUGS (4)
  1. COMBIVIR [Suspect]
     Indication: HIV INFECTION
     Dosage: 1TAB Twice per day
     Route: 048
     Dates: start: 20121022, end: 20121025
  2. KALETRA [Suspect]
     Indication: HIV INFECTION
     Dosage: 2UNIT Twice per day
     Route: 048
     Dates: start: 20121022, end: 20121025
  3. SUSTIVA [Concomitant]
     Indication: HIV INFECTION
     Dates: end: 2012
  4. TRUVADA [Concomitant]
     Indication: HIV INFECTION
     Dates: end: 2012

REACTIONS (4)
  - Rash [Recovered/Resolved]
  - Face oedema [Recovered/Resolved]
  - Pruritus [Recovered/Resolved]
  - Hypersensitivity [Recovered/Resolved]
